FAERS Safety Report 17268459 (Version 1)
Quarter: 2020Q1

REPORT INFORMATION
  Report Type: Spontaneous
  Country: US (occurrence: US)
  Receive Date: 20191223
  Receipt Date: 20191223
  Transmission Date: 20200409
  Serious: Yes (Hospitalization)
  Sender: FDA-Public Use
  Company Number: None

PATIENT
  Age: 72 Year
  Sex: Female

DRUGS (1)
  1. IMATINIB MES 100MG TAB [Suspect]
     Active Substance: IMATINIB MESYLATE
     Indication: GASTROINTESTINAL STROMAL TUMOUR
     Dosage: 100 MG TAB 3 TABS, 1 WEEK, THEN INCREASE TO 4 0RAL
     Route: 048
     Dates: start: 20190626

REACTIONS (1)
  - Peripheral swelling [None]
